FAERS Safety Report 13490569 (Version 3)
Quarter: 2018Q4

REPORT INFORMATION
  Report Type: Report from Study
  Country: US (occurrence: US)
  Receive Date: 20170427
  Receipt Date: 20181004
  Transmission Date: 20190204
  Serious: Yes (Hospitalization, Other)
  Sender: FDA-Public Use
  Company Number: US-ROCHE-1855652

PATIENT
  Age: 46 Year
  Sex: Male
  Weight: 73.1 kg

DRUGS (15)
  1. ZOFRAN [Concomitant]
     Active Substance: ONDANSETRON HYDROCHLORIDE
     Indication: VOMITING
  2. PREDNISONE. [Suspect]
     Active Substance: PREDNISONE
     Indication: DIFFUSE LARGE B-CELL LYMPHOMA
     Dosage: ON DAYS 1 - 5 OF EACH 21 DAY CYCLE
     Route: 048
     Dates: start: 20160714
  3. ROXICODONE [Concomitant]
     Active Substance: OXYCODONE HYDROCHLORIDE
     Indication: PAIN
     Dosage: IMMEDIATED RELEASE TABLET?1 TABLET EVERY 4 HOURS AS NEEDED
     Route: 048
     Dates: start: 20160615
  4. OBINUTUZUMAB. [Suspect]
     Active Substance: OBINUTUZUMAB
     Indication: DIFFUSE LARGE B-CELL LYMPHOMA
     Dosage: ON DAYS 1, 8, AND 15 OF CYCLE 1 AND DAY 1 OF CYCLES 2 - 6
     Route: 042
     Dates: start: 20160714
  5. ZOFRAN [Concomitant]
     Active Substance: ONDANSETRON HYDROCHLORIDE
     Indication: NAUSEA
     Dosage: 1 TABLET EVERY 8 HOURS AS NEEDED
     Route: 048
     Dates: start: 20160623
  6. LENALIDOMIDE [Suspect]
     Active Substance: LENALIDOMIDE
     Indication: DIFFUSE LARGE B-CELL LYMPHOMA
     Dosage: ON DAYS 1 - 14 OF EACH 21 DAY CYCLE
     Route: 048
     Dates: start: 20160714
  7. CYCLOPHOSPHAMIDE. [Suspect]
     Active Substance: CYCLOPHOSPHAMIDE
     Indication: DIFFUSE LARGE B-CELL LYMPHOMA
     Dosage: OVER ABOUT 1 HOUR ON DAY 1 OF ALL CYCLES
     Route: 042
     Dates: start: 20160714
  8. PHENERGAN [Concomitant]
     Active Substance: PROMETHAZINE HYDROCHLORIDE
     Route: 048
  9. TESTOSTERONE CYPIONATE. [Concomitant]
     Active Substance: TESTOSTERONE CYPIONATE
     Route: 030
  10. KLOR-CON [Concomitant]
     Active Substance: POTASSIUM CHLORIDE
     Dosage: DAILY 2 TABLETS
     Route: 048
     Dates: start: 20160623
  11. VINCRISTINE [Suspect]
     Active Substance: VINCRISTINE
     Indication: DIFFUSE LARGE B-CELL LYMPHOMA
     Dosage: ON DAY 1 OF ALL CYCLES
     Route: 042
     Dates: start: 20160714
  12. CEFPODOXIME [Concomitant]
     Active Substance: CEFPODOXIME
  13. ASPIRIN. [Concomitant]
     Active Substance: ASPIRIN
     Dosage: 1 TABLET DAILY
     Route: 048
     Dates: start: 20160623
  14. DOXORUBICIN [Suspect]
     Active Substance: DOXORUBICIN
     Indication: DIFFUSE LARGE B-CELL LYMPHOMA
     Dosage: OVER ABOUT 15 MINUTES EACH ON DAY 1 OF ALL CYCLES
     Route: 042
     Dates: start: 20160714
  15. ZYLOPRIM [Concomitant]
     Active Substance: ALLOPURINOL
     Dosage: 1 TABLET
     Route: 048
     Dates: start: 20160623

REACTIONS (16)
  - Ill-defined disorder [Recovered/Resolved]
  - Cough [Recovered/Resolved]
  - Cellulitis [Unknown]
  - Myalgia [Recovered/Resolved]
  - Fatigue [Recovered/Resolved]
  - Hypotension [Recovered/Resolved]
  - Tachycardia [Recovered/Resolved]
  - Diarrhoea [Recovered/Resolved]
  - Myalgia [Recovered/Resolved]
  - Neutropenic infection [Recovered/Resolved]
  - Febrile neutropenia [Recovered/Resolved]
  - Thrombocytopenia [Recovered/Resolved]
  - Cellulitis [Recovered/Resolved]
  - Pharyngitis [Recovered/Resolved]
  - Febrile neutropenia [Recovered/Resolved]
  - Thrombophlebitis [Unknown]

NARRATIVE: CASE EVENT DATE: 20160720
